FAERS Safety Report 4870167-X (Version None)
Quarter: 2005Q4

REPORT INFORMATION
  Report Type: 
  Country: None (occurrence: None)
  Receive Date: 20051228
  Receipt Date: 20051212
  Transmission Date: 20060501
  Serious: Yes (Hospitalization)
  Sender: FDA-Public Use
  Company Number: 200512IM000814

PATIENT
  Age: 68 Year
  Sex: Male

DRUGS (21)
  1. A643_INTERFERON ALFACON-1 [Suspect]
     Indication: HEPATITIS C
     Dosage: 18 MIU, QD, SUBCUTANEOUS; 18 MIU, TIW, SUBCUTANEOUS
     Route: 058
     Dates: start: 20040518, end: 20040525
  2. A643_INTERFERON ALFACON-1 [Suspect]
     Indication: HEPATITIS C
     Dosage: 18 MIU, QD, SUBCUTANEOUS; 18 MIU, TIW, SUBCUTANEOUS
     Route: 058
     Dates: start: 20040528, end: 20041101
  3. LOXOPROFEN SODIUM [Concomitant]
  4. TEPRENONE [Concomitant]
  5. BROTIZOLAM [Concomitant]
  6. EXCELASE (SANACTASE) [Concomitant]
  7. CEPHALEXIN MONOHYDRATE [Concomitant]
  8. CLOSTRIDIUM BUTYRICUM [Concomitant]
  9. LOXOPROFEN SODIUM [Concomitant]
  10. BUFFERIN [Concomitant]
  11. REBAMIPIDE [Concomitant]
  12. BENZEBROMARONE [Concomitant]
  13. PRONASE [Concomitant]
  14. SODIUM BICARBONATE [Concomitant]
  15. DIMETICONE [Concomitant]
  16. GLUCAGON [Concomitant]
  17. POVIDONE IODINE [Concomitant]
  18. LIDOCAINE [Concomitant]
  19. CHLORHEXIDINE [Concomitant]
  20. TIMOLOL MALEATE [Concomitant]
  21. GLUTATHIONE [Concomitant]

REACTIONS (4)
  - ANAEMIA [None]
  - COLON CANCER [None]
  - COLONIC POLYP [None]
  - MALIGNANT NEOPLASM PROGRESSION [None]
